FAERS Safety Report 16755010 (Version 3)
Quarter: 2019Q4

REPORT INFORMATION
  Report Type: Spontaneous
  Country: US (occurrence: US)
  Receive Date: 20190829
  Receipt Date: 20191024
  Transmission Date: 20200122
  Serious: Yes (Other)
  Sender: FDA-Public Use
  Company Number: US-PFIZER INC-2018283027

PATIENT
  Age: 89 Year
  Sex: Female
  Weight: 73 kg

DRUGS (23)
  1. LYRICA [Suspect]
     Active Substance: PREGABALIN
     Indication: POLYNEUROPATHY
  2. VITAMIN D3 [Concomitant]
     Active Substance: CHOLECALCIFEROL
     Dosage: 2000 IU, DAILY (TAKE 1 CAPSULE BY MOUTH DAILY)
     Route: 048
  3. ZESTRIL [Concomitant]
     Active Substance: LISINOPRIL
     Dosage: 2.5 MG, DAILY [TAKE 0.5 TABLETS]
     Route: 048
  4. LYRICA [Suspect]
     Active Substance: PREGABALIN
     Indication: DIABETIC NEUROPATHY
     Dosage: 100 MG, 2X/DAY (ONCE IN THE MORNING AND ONCE AT NIGHT)
     Route: 048
  5. BETAPACE [Concomitant]
     Active Substance: SOTALOL HYDROCHLORIDE
     Indication: BLOOD PRESSURE ABNORMAL
     Dosage: 80 MG, 2X/DAY (TAKE 1 TABLET EVERY 12 HOURS)
     Route: 048
  6. MEDROL [Concomitant]
     Active Substance: METHYLPREDNISOLONE
     Dosage: 2 MG, DAILY (TAKE 1/2 TABLET EVERY DAY WITH BREAKFAST)
  7. PRILOSEC [Concomitant]
     Active Substance: OMEPRAZOLE MAGNESIUM
     Dosage: 20 MG, DAILY
  8. NORCO [Concomitant]
     Active Substance: ACETAMINOPHEN\HYDROCODONE BITARTRATE
     Indication: PAIN
     Dosage: UNK, AS NEEDED [ 1 TABLET 5-325 BY MOUTH 3 TIMES A DAY AS NEEDED]
     Route: 048
  9. LANOLIN;MINERAL OIL;PETROLATUM [Concomitant]
     Dosage: UNK, AS NEEDED
     Route: 047
  10. ULTRAM [Concomitant]
     Active Substance: TRAMADOL HYDROCHLORIDE
     Indication: PAIN
     Dosage: 100 MG, AS NEEDED [2 TABLETS (100 MG TOTAL)/EVERY 8 (EIGHT) HOURS AS NEEDED]
     Route: 048
  11. VALTREX [Concomitant]
     Active Substance: VALACYCLOVIR HYDROCHLORIDE
     Dosage: 500 MG, DAILY
  12. VITAMIN B COMPLEX [DEXPANTHENOL;NICOTINAMIDE;PROCAINE HYDROCHLORIDE;PY [Concomitant]
     Dosage: 1 DF, DAILY (TAKE 1 CAPSULE BY MOUTH DAILY)
     Route: 048
  13. PRESERVISION AREDS 2 [Concomitant]
     Active Substance: MINERALS\VITAMINS
     Dosage: 1 DF, DAILY
     Route: 048
  14. DITROPAN [Concomitant]
     Active Substance: OXYBUTYNIN CHLORIDE
     Dosage: 5 MG, 1X/DAY (NIGHTLY 24 HR TABLET (EXPIRED))
     Route: 048
  15. COUMADIN [Concomitant]
     Active Substance: WARFARIN SODIUM
     Dosage: 2.5 MG, ALTERNATE DAY [2.5 MG DAILY ON ALL OTHER DAYS OF THE WEEK]
  16. APRESOLINE HYDROCHLORIDE [Concomitant]
     Active Substance: HYDRALAZINE HYDROCHLORIDE
     Indication: BLOOD PRESSURE ABNORMAL
     Dosage: 50 MG, 2X/DAY  (TAKE 1 TABLET (50 MG TOTAL) BY MOUTH EVERY 12(TWELVE) HOURS)
     Route: 048
  17. CARTIA XT [Concomitant]
     Active Substance: DILTIAZEM HYDROCHLORIDE
     Dosage: 120 MG, DAILY (24 HR CAPSULE,TAKE 1 CAPSULE (120 MG TOTAL) BY MOUTH DAILY)
  18. LASIX [Concomitant]
     Active Substance: FUROSEMIDE
     Indication: FLUID RETENTION
     Dosage: 40 MG, 1X/DAY
     Route: 048
  19. PRINIVIL [Concomitant]
     Active Substance: LISINOPRIL
     Dosage: 2.5 MG, DAILY [TAKE 0.5 TABLETS]
     Route: 048
  20. MELATONIN [Concomitant]
     Active Substance: MELATONIN
     Dosage: 10 MG, AS NEEDED [AT BEDTIME PRN]
     Route: 048
  21. LYRICA [Suspect]
     Active Substance: PREGABALIN
     Indication: NEUROPATHY PERIPHERAL
     Dosage: 75 MG, UNK
     Route: 048
     Dates: start: 2015
  22. DILTIAZEM. [Concomitant]
     Active Substance: DILTIAZEM
     Indication: CARDIAC DISORDER
     Dosage: 20 MG, 2X/DAY
     Route: 048
  23. COUMADIN [Concomitant]
     Active Substance: WARFARIN SODIUM
     Indication: ANTICOAGULANT THERAPY
     Dosage: 5 MG, ALTERNATE DAY [TAKE 5 MG DAILY ON MON, WED AND FRI]

REACTIONS (2)
  - Cardiac failure congestive [Unknown]
  - Nervousness [Unknown]

NARRATIVE: CASE EVENT DATE: 2015
